FAERS Safety Report 7042486-2 (Version None)
Quarter: 2010Q4

REPORT INFORMATION
  Report Type: 
  Country: None (occurrence: None)
  Receive Date: 20101013
  Receipt Date: 20090819
  Transmission Date: 20110411
  Serious: No
  Sender: FDA-Public Use
  Company Number: US-ASTRAZENECA-2009UW19164

PATIENT
  Age: 71 Year
  Sex: Female
  Weight: 68.5 kg

DRUGS (19)
  1. SYMBICORT [Suspect]
     Dosage: 80/4.5, 2 PUFFS
     Route: 055
  2. SYMBICORT [Suspect]
     Dosage: 80/4.5, 2 PUFFS
     Route: 055
  3. ESTREST [Concomitant]
  4. ATENOLOL [Concomitant]
  5. HYDROCHLOROTHIAZIDE [Concomitant]
  6. SYNTHROID [Concomitant]
  7. FLUOXETINE [Concomitant]
  8. ZETIA [Concomitant]
  9. OMEPRAZOLE [Concomitant]
  10. LORAZEPAM [Concomitant]
  11. AMBIEN [Concomitant]
  12. HYDROCODONE [Concomitant]
  13. EXFORGE [Concomitant]
  14. LOVASTATIN [Concomitant]
  15. ASPIRIN [Concomitant]
  16. VITAMIN D [Concomitant]
  17. MAGNESIUM [Concomitant]
  18. FISH OIL [Concomitant]
  19. MULTI-VITAMIN [Concomitant]

REACTIONS (2)
  - DRUG INEFFECTIVE [None]
  - GLOSSITIS [None]
